FAERS Safety Report 22007948 (Version 1)
Quarter: 2023Q1

REPORT INFORMATION
  Report Type: Spontaneous
  Country: LB (occurrence: LB)
  Receive Date: 20230218
  Receipt Date: 20230218
  Transmission Date: 20230417
  Serious: Yes (Hospitalization, Other)
  Sender: FDA-Public Use
  Company Number: LB-AMGEN-LBNSP2023024866

PATIENT
  Age: 28 Year
  Sex: Male

DRUGS (1)
  1. ADALIMUMAB [Suspect]
     Active Substance: ADALIMUMAB
     Indication: Crohn^s disease
     Dosage: UNK
     Route: 065

REACTIONS (10)
  - Sphingomonas paucimobilis bacteraemia [Recovered/Resolved]
  - Endocarditis [Recovered/Resolved]
  - Ischaemic stroke [Recovered/Resolved]
  - Generalised tonic-clonic seizure [Recovered/Resolved]
  - Aortic valve incompetence [Recovered/Resolved]
  - Cerebral artery occlusion [Recovered/Resolved]
  - Crohn^s disease [Recovered/Resolved]
  - Infective aneurysm [Recovered/Resolved]
  - Meningitis fungal [Recovered/Resolved]
  - Oropharyngeal candidiasis [Recovered/Resolved]
